FAERS Safety Report 9479252 (Version 1)
Quarter: 2013Q3

REPORT INFORMATION
  Report Type: Spontaneous
  Country: IN (occurrence: IN)
  Receive Date: 20130827
  Receipt Date: 20130827
  Transmission Date: 20140515
  Serious: Yes (Hospitalization, Other)
  Sender: FDA-Public Use
  Company Number: IN-ACTAVIS-2013-14846

PATIENT
  Age: 13 Year
  Sex: Female

DRUGS (2)
  1. SODIUM VALPROATE (UNKNOWN) [Suspect]
     Indication: EPILEPSY
     Dosage: 1250 MG, DAILY IN TWO DIVIDED DOSES
     Route: 048
  2. PHENYTOIN (AMALLC) [Interacting]
     Indication: EPILEPSY
     Dosage: 300 MG, DAILY
     Route: 048

REACTIONS (3)
  - Coma [Recovered/Resolved]
  - Hyperammonaemia [Recovered/Resolved]
  - Drug interaction [Recovered/Resolved]
